FAERS Safety Report 9153722 (Version 1)
Quarter: 2013Q1

REPORT INFORMATION
  Report Type: Spontaneous
  Country: US (occurrence: US)
  Receive Date: 20130311
  Receipt Date: 20130311
  Transmission Date: 20140127
  Serious: Yes (Hospitalization)
  Sender: FDA-Public Use
  Company Number: US-BAYER-2013-027567

PATIENT
  Age: 26 Year
  Sex: Female
  Weight: 88.89 kg

DRUGS (3)
  1. GIANVI [Suspect]
  2. IBUPROFEN [Concomitant]
     Dosage: 800 MG, UNK
     Route: 048
     Dates: start: 20110627
  3. CEPHALEXIN [Concomitant]
     Dosage: 500 MG, UNK
     Route: 048
     Dates: start: 20110706

REACTIONS (1)
  - Cerebrovascular accident [None]
